FAERS Safety Report 26166972 (Version 1)
Quarter: 2025Q4

REPORT INFORMATION
  Report Type: Spontaneous
  Country: EU (occurrence: EU)
  Receive Date: 20251217
  Receipt Date: 20251217
  Transmission Date: 20260118
  Serious: Yes (Hospitalization, Other)
  Sender: DR REDDYS
  Company Number: None

PATIENT
  Age: 82 Year
  Sex: Female
  Weight: 70 kg

DRUGS (6)
  1. LETROZOLE [Suspect]
     Active Substance: LETROZOLE
     Indication: Breast cancer
     Route: 048
     Dates: start: 20211220, end: 20240814
  2. EXEMESTANE [Suspect]
     Active Substance: EXEMESTANE
     Indication: Breast cancer
     Route: 048
     Dates: start: 20240815, end: 20250910
  3. ANASTROZOLE [Suspect]
     Active Substance: ANASTROZOLE
     Indication: Breast cancer
     Route: 048
     Dates: start: 20211004, end: 20211219
  4. PALBOCICLIB [Suspect]
     Active Substance: PALBOCICLIB
     Indication: Breast cancer
     Dosage: EVERY 28 DAY CYCLE
     Route: 048
     Dates: start: 20211004
  5. PALBOCICLIB [Suspect]
     Active Substance: PALBOCICLIB
     Dosage: EVERY 28 DAY CYCLE
     Route: 048
     Dates: start: 20211129, end: 20220213
  6. PALBOCICLIB [Suspect]
     Active Substance: PALBOCICLIB
     Dosage: EVERY 28 DAY CYCLE
     Route: 048
     Dates: start: 20220221

REACTIONS (3)
  - Acute kidney injury [Recovered/Resolved]
  - Lung adenocarcinoma [Recovered/Resolved]
  - Second primary malignancy [Recovered/Resolved]

NARRATIVE: CASE EVENT DATE: 20250904
